FAERS Safety Report 9292107 (Version 1)
Quarter: 2013Q2

REPORT INFORMATION
  Report Type: Spontaneous
  Country: US (occurrence: US)
  Receive Date: 20130516
  Receipt Date: 20130516
  Transmission Date: 20140414
  Serious: No
  Sender: FDA-Public Use
  Company Number: US-009507513-1305USA001364

PATIENT
  Age: 64 Year
  Sex: Male

DRUGS (4)
  1. ZOLINZA [Suspect]
     Dosage: UNK
     Route: 048
  2. ZOLINZA [Interacting]
     Dosage: DECREASED DOSE
     Route: 048
  3. METFORMIN [Interacting]
     Dosage: UNK
     Route: 048
  4. METFORMIN [Interacting]
     Dosage: DECREASED DOSE

REACTIONS (2)
  - Blood creatinine increased [Recovered/Resolved]
  - Drug interaction [Unknown]
